FAERS Safety Report 18747253 (Version 2)
Quarter: 2023Q4

REPORT INFORMATION
  Report Type: Spontaneous
  Country: US (occurrence: US)
  Receive Date: 20210115
  Receipt Date: 20231010
  Transmission Date: 20240110
  Serious: No
  Sender: FDA-Public Use
  Company Number: US-GLAXOSMITHKLINE-US2021AMR005850

PATIENT
  Sex: Female

DRUGS (1)
  1. BENLYSTA [Suspect]
     Active Substance: BELIMUMAB
     Indication: Systemic lupus erythematosus
     Dosage: 200 MG
     Route: 058

REACTIONS (4)
  - Injection site pain [Recovered/Resolved]
  - Wrong technique in product usage process [Unknown]
  - Product storage error [Unknown]
  - Product dose omission issue [Unknown]
